FAERS Safety Report 8289505-3 (Version None)
Quarter: 2012Q2

REPORT INFORMATION
  Report Type: 
  Country: None (occurrence: None)
  Receive Date: 20120417
  Receipt Date: 20120405
  Transmission Date: 20120825
  Serious: Yes (Other)
  Sender: FDA-Public Use
  Company Number: US-SANOFI-AVENTIS-2012SA024231

PATIENT
  Sex: Male

DRUGS (6)
  1. FLONASE [Concomitant]
  2. ALLEGRA [Suspect]
     Route: 048
  3. PEPCID [Concomitant]
  4. VITAMIN TAB [Concomitant]
  5. ALLEGRA [Suspect]
     Indication: MULTIPLE ALLERGIES
     Route: 048
  6. CLARITIN [Concomitant]

REACTIONS (2)
  - SINUS DISORDER [None]
  - CONDITION AGGRAVATED [None]
